FAERS Safety Report 4924363-3 (Version None)
Quarter: 2006Q1

REPORT INFORMATION
  Report Type: 
  Country: None (occurrence: None)
  Receive Date: 20060227
  Receipt Date: 20060124
  Transmission Date: 20060701
  Serious: Yes (Hospitalization, Other)
  Sender: FDA-Public Use
  Company Number: US-GLAXOSMITHKLINE-A0590747A

PATIENT
  Age: 56 Year
  Sex: Female

DRUGS (4)
  1. WELLBUTRIN [Suspect]
     Dosage: 150MG PER DAY
     Route: 048
     Dates: start: 20050401
  2. ZOLOFT [Concomitant]
  3. HYDROCHLOROTHIAZIDE [Concomitant]
  4. FOSAMAX [Concomitant]

REACTIONS (2)
  - ALOPECIA [None]
  - EXTRASYSTOLES [None]
